FAERS Safety Report 10603347 (Version 2)
Quarter: 2014Q4

REPORT INFORMATION
  Report Type: Report from Study
  Country: CZ (occurrence: CZ)
  Receive Date: 20141124
  Receipt Date: 20141219
  Transmission Date: 20150529
  Serious: Yes (Hospitalization)
  Sender: FDA-Public Use
  Company Number: CZ-AMGEN-CZENI2014090018

PATIENT
  Sex: Female

DRUGS (8)
  1. PANITUMUMAB [Suspect]
     Active Substance: PANITUMUMAB
     Route: 042
  2. 5 FLUOROURACIL                     /00098801/ [Concomitant]
     Active Substance: FLUOROURACIL
     Indication: COLORECTAL CANCER METASTATIC
     Dosage: 4850 UNK, Q2WK
     Route: 042
     Dates: start: 20140813, end: 20140930
  3. PANITUMUMAB [Suspect]
     Active Substance: PANITUMUMAB
     Dosage: UNK
     Route: 042
  4. PANITUMUMAB [Suspect]
     Active Substance: PANITUMUMAB
     Indication: COLORECTAL CANCER METASTATIC
     Dosage: 456 UNK, Q2WK
     Route: 042
     Dates: start: 20140815, end: 20140930
  5. PANITUMUMAB [Suspect]
     Active Substance: PANITUMUMAB
     Route: 042
  6. RED BLOOD CELLS [Concomitant]
     Active Substance: HUMAN RED BLOOD CELL
     Dosage: 2 UNIT, TRANSFUSION
     Dates: start: 20140812
  7. OXALIPLATINE [Concomitant]
     Active Substance: OXALIPLATIN
     Indication: COLORECTAL CANCER METASTATIC
     Dosage: 147 UNK, Q2WK
     Route: 042
     Dates: start: 20140813, end: 20140930
  8. CALCIUM FOLINATE [Concomitant]
     Active Substance: LEUCOVORIN CALCIUM
     Indication: COLORECTAL CANCER METASTATIC
     Dosage: 690 UNK, Q2WK
     Route: 042
     Dates: start: 20140813, end: 20140930

REACTIONS (3)
  - Anaemia [Recovered/Resolved]
  - Dermatitis [Recovered/Resolved]
  - Hypomagnesaemia [Recovering/Resolving]

NARRATIVE: CASE EVENT DATE: 20140901
